FAERS Safety Report 7345554-0 (Version None)
Quarter: 2011Q1

REPORT INFORMATION
  Report Type: 
  Country: None (occurrence: None)
  Receive Date: 20110310
  Receipt Date: 20110223
  Transmission Date: 20110831
  Serious: Yes (Hospitalization)
  Sender: FDA-Public Use
  Company Number: FR-GENENTECH-314636

PATIENT
  Sex: Female
  Weight: 42.5 kg

DRUGS (1)
  1. XOLAIR [Suspect]
     Indication: ASTHMA
     Dosage: 300 MG, Q2W
     Dates: start: 20090401

REACTIONS (4)
  - CONVULSION [None]
  - AMNESIA [None]
  - URINARY INCONTINENCE [None]
  - TONIC CONVULSION [None]
